FAERS Safety Report 6971739-9 (Version None)
Quarter: 2010Q3

REPORT INFORMATION
  Report Type: 
  Country: None (occurrence: None)
  Receive Date: 20100903
  Receipt Date: 20100825
  Transmission Date: 20110219
  Serious: Yes (Hospitalization, Other)
  Sender: FDA-Public Use
  Company Number: 2009SP015451

PATIENT
  Age: 61 Year
  Sex: Male
  Weight: 83.9154 kg

DRUGS (9)
  1. DR. SCHOLL'S FUNGAL NAIL REVITALIZER SYSTEM (NO ACTIVE INGREDIENTS) [Suspect]
     Indication: NAIL DISCOLOURATION
     Dosage: TOP
     Route: 061
     Dates: start: 20090523, end: 20090602
  2. NORVASC [Concomitant]
  3. CATAPRES [Concomitant]
  4. CAPOTEN [Concomitant]
  5. PHOSLO [Concomitant]
  6. SIMVASTATIN [Concomitant]
  7. AVANDAMET [Concomitant]
  8. ALBUTEROL [Concomitant]
  9. INSULIN [Concomitant]

REACTIONS (27)
  - ACTIVITIES OF DAILY LIVING IMPAIRED [None]
  - BLISTER [None]
  - CARDIAC DISORDER [None]
  - CARDIAC FAILURE CONGESTIVE [None]
  - CHEMICAL INJURY [None]
  - DIALYSIS [None]
  - DIASTOLIC DYSFUNCTION [None]
  - EMBOLISM ARTERIAL [None]
  - EMOTIONAL DISTRESS [None]
  - ESCHAR [None]
  - EXTREMITY NECROSIS [None]
  - FINGER AMPUTATION [None]
  - GANGRENE [None]
  - HYPERKERATOSIS [None]
  - HYPERTENSION [None]
  - IMPAIRED HEALING [None]
  - LOBAR PNEUMONIA [None]
  - NAIL INFECTION [None]
  - ONYCHOMADESIS [None]
  - OPEN WOUND [None]
  - OSTEOMYELITIS ACUTE [None]
  - PAIN [None]
  - PULSE ABSENT [None]
  - SKIN EXFOLIATION [None]
  - SPLINTER HAEMORRHAGES [None]
  - ULCER HAEMORRHAGE [None]
  - WOUND DEHISCENCE [None]
